FAERS Safety Report 10627955 (Version 2)
Quarter: 2014Q4

REPORT INFORMATION
  Report Type: Spontaneous
  Country: US (occurrence: US)
  Receive Date: 20141205
  Receipt Date: 20141223
  Transmission Date: 20150529
  Serious: Yes (Other)
  Sender: FDA-Public Use
  Company Number: US-BRISTOL-MYERS SQUIBB COMPANY-21642996

PATIENT
  Age: 58 Year
  Sex: Female
  Weight: 65.76 kg

DRUGS (1)
  1. ERBITUX [Suspect]
     Active Substance: CETUXIMAB
     Indication: COLORECTAL CANCER METASTATIC
     Dosage: 250 MG/M2, UNK
     Dates: start: 20141113

REACTIONS (3)
  - Tetany [Recovered/Resolved]
  - Rash [Unknown]
  - Mucosal inflammation [Unknown]

NARRATIVE: CASE EVENT DATE: 20141120
